FAERS Safety Report 13869091 (Version 1)
Quarter: 2017Q3

REPORT INFORMATION
  Report Type: Spontaneous
  Country: US (occurrence: US)
  Receive Date: 20170815
  Receipt Date: 20170815
  Transmission Date: 20171127
  Serious: Yes (Hospitalization)
  Sender: FDA-Public Use
  Company Number: US-INTERPRAG-PM-OCA2017-00682

PATIENT

DRUGS (2)
  1. OCALIVA [Suspect]
     Active Substance: OBETICHOLIC ACID
     Dosage: 5 MG, QD
     Route: 048
     Dates: start: 201703
  2. OCALIVA [Suspect]
     Active Substance: OBETICHOLIC ACID
     Dosage: 5 MG, QD
     Route: 048
     Dates: start: 20170711

REACTIONS (8)
  - Asthenia [Not Recovered/Not Resolved]
  - Rash [Unknown]
  - Pruritus generalised [Unknown]
  - Dizziness [Not Recovered/Not Resolved]
  - Colitis [Not Recovered/Not Resolved]
  - Jaundice [Unknown]
  - Pain [Unknown]
  - Malaise [Not Recovered/Not Resolved]
